FAERS Safety Report 24566104 (Version 2)
Quarter: 2024Q4

REPORT INFORMATION
  Report Type: Spontaneous
  Country: CN (occurrence: CN)
  Receive Date: 20241030
  Receipt Date: 20241204
  Transmission Date: 20250114
  Serious: Yes (Hospitalization)
  Sender: JOHNSON AND JOHNSON
  Company Number: CN-JNJFOC-20241073608

PATIENT
  Age: 83 Year
  Sex: Male
  Weight: 80 kg

DRUGS (2)
  1. DARZALEX [Suspect]
     Active Substance: DARATUMUMAB
     Indication: Plasma cell myeloma
     Dosage: 100MG/5ML/VIAL
     Route: 065
  2. DARZALEX [Suspect]
     Active Substance: DARATUMUMAB
     Dosage: 400MG/20ML/VIAL
     Route: 065

REACTIONS (7)
  - Hypersensitivity [Recovering/Resolving]
  - Respiratory rate increased [Recovering/Resolving]
  - Chest discomfort [Recovering/Resolving]
  - Laryngeal oedema [Recovering/Resolving]
  - Aphasia [Recovering/Resolving]
  - Stiff tongue [Recovering/Resolving]
  - Infusion related reaction [Recovering/Resolving]
